FAERS Safety Report 23797117 (Version 2)
Quarter: 2024Q2

REPORT INFORMATION
  Report Type: Spontaneous
  Country: TH (occurrence: TH)
  Receive Date: 20240430
  Receipt Date: 20240508
  Transmission Date: 20240716
  Serious: Yes (Other)
  Sender: FDA-Public Use
  Company Number: TH-Merck Healthcare KGaA-2024022441

PATIENT
  Age: 10 Year
  Sex: Female

DRUGS (1)
  1. SAIZEN [Suspect]
     Active Substance: SOMATROPIN
     Indication: Product used for unknown indication
     Dosage: BEFORE BEDTIME
     Route: 058
     Dates: start: 20230619, end: 202312

REACTIONS (2)
  - Guillain-Barre syndrome [Unknown]
  - Amyotrophic lateral sclerosis [Unknown]
